FAERS Safety Report 6714090-4 (Version None)
Quarter: 2010Q2

REPORT INFORMATION
  Report Type: 
  Country: None (occurrence: None)
  Receive Date: 20100506
  Receipt Date: 20100429
  Transmission Date: 20101027
  Serious: No
  Sender: FDA-Public Use
  Company Number: US-ROXANE LABORATORIES, INC.-2010-RO-00507RO

PATIENT
  Sex: Male

DRUGS (5)
  1. FLUTICASONE PROPIONATE [Suspect]
     Indication: RHINITIS
     Route: 045
     Dates: start: 20100331
  2. PHENYTOIN [Concomitant]
  3. PROTONIX [Concomitant]
  4. ASPIRIN [Concomitant]
  5. LUMIGAN [Concomitant]
     Route: 031

REACTIONS (3)
  - ASTHENIA [None]
  - FEELING ABNORMAL [None]
  - GAIT DISTURBANCE [None]
